FAERS Safety Report 22155340 (Version 1)
Quarter: 2023Q1

REPORT INFORMATION
  Report Type: Spontaneous
  Country: US (occurrence: None)
  Receive Date: 20230329
  Receipt Date: 20230329
  Transmission Date: 20230417
  Serious: No
  Sender: FDA-Public Use
  Company Number: None

PATIENT
  Age: 56 Year
  Sex: Female
  Weight: 99 kg

DRUGS (38)
  1. REPATHA [Suspect]
     Active Substance: EVOLOCUMAB
     Indication: Lipids increased
     Dosage: 1MG/DL EVERY 14 DAYS SUBCUTANEOUS
     Route: 058
     Dates: start: 20230325
  2. PROGESTERONE [Concomitant]
     Active Substance: PROGESTERONE
  3. ESTRADIOL TRANSDERMAL SYSTEM [Concomitant]
     Active Substance: ESTRADIOL
  4. ASPIRIN [Concomitant]
     Active Substance: ASPIRIN
  5. PRASUGREL [Concomitant]
     Active Substance: PRASUGREL
  6. NITROGLYCERIN [Concomitant]
     Active Substance: NITROGLYCERIN
  7. CYCLOBENZAPRINE [Concomitant]
     Active Substance: CYCLOBENZAPRINE
  8. MAGNESIUM GLYCINATE [Concomitant]
     Active Substance: MAGNESIUM GLYCINATE
  9. VITAMIN D3 [Concomitant]
     Active Substance: CHOLECALCIFEROL
  10. MENAQUINONE 6 [Concomitant]
     Active Substance: MENAQUINONE 6
  11. COENZYME Q10 [Concomitant]
     Active Substance: DIETARY SUPPLEMENT\UBIDECARENONE
  12. Lipsomal [Concomitant]
  13. VITAMIN C [Concomitant]
     Active Substance: ASCORBIC ACID
  14. ZINC [Concomitant]
     Active Substance: ZINC
  15. BORON [Concomitant]
     Active Substance: BORON
  16. SELENIUM [Concomitant]
     Active Substance: SELENIUM
  17. Pure Encapsulations B6 Complex [Concomitant]
  18. THIAMINE [Concomitant]
     Active Substance: THIAMINE
  19. RIBOFLAVIN [Concomitant]
     Active Substance: RIBOFLAVIN
  20. NIACIN [Concomitant]
     Active Substance: NIACIN
  21. FOLATE SODIUM [Concomitant]
     Active Substance: FOLATE SODIUM
  22. VITAMIN B12 [Concomitant]
     Active Substance: CYANOCOBALAMIN
  23. METHYLCOBALAMIN [Concomitant]
     Active Substance: METHYLCOBALAMIN
  24. adenosylcobalmin [Concomitant]
  25. HYDROXOCOBALAMIN [Concomitant]
     Active Substance: HYDROXOCOBALAMIN
  26. BIOTIN [Concomitant]
     Active Substance: BIOTIN
  27. PANTOTHENIC ACID [Concomitant]
     Active Substance: PANTOTHENIC ACID
  28. CHOLINE [Concomitant]
     Active Substance: CHOLINE
  29. BERBERINE HCL [Concomitant]
  30. Antarctic Krill Oil [Concomitant]
  31. UNSPECIFIED INGREDIENT [Concomitant]
     Active Substance: UNSPECIFIED INGREDIENT
  32. PROBIOTICS NOS [Concomitant]
     Active Substance: PROBIOTICS NOS
  33. GLUTAMINE [Concomitant]
     Active Substance: GLUTAMINE
  34. CARNITINE [Concomitant]
     Active Substance: CARNITINE
  35. PRASTERONE [Concomitant]
     Active Substance: PRASTERONE
  36. Cortisol Calm [Concomitant]
  37. Melatonin SR [Concomitant]
  38. Multi t/d [Concomitant]

REACTIONS (10)
  - Injection site pain [None]
  - Burning sensation [None]
  - Muscle spasms [None]
  - Muscular weakness [None]
  - Pain [None]
  - Feeling abnormal [None]
  - Headache [None]
  - Tinnitus [None]
  - Paraesthesia [None]
  - Oral discomfort [None]

NARRATIVE: CASE EVENT DATE: 20230325
